FAERS Safety Report 10566493 (Version 1)
Quarter: 2014Q4

REPORT INFORMATION
  Report Type: Spontaneous
  Country: US (occurrence: US)
  Receive Date: 20141105
  Receipt Date: 20141105
  Transmission Date: 20150529
  Serious: Yes (Disabling, Other)
  Sender: FDA-Public Use
  Company Number: US-PFIZER INC-2014302629

PATIENT

DRUGS (2)
  1. LYRICA [Suspect]
     Active Substance: PREGABALIN
     Indication: NEURALGIA
     Dosage: UNK
  2. LYRICA [Suspect]
     Active Substance: PREGABALIN
     Indication: FIBROMYALGIA

REACTIONS (12)
  - Neuralgia [Unknown]
  - Medial tibial stress syndrome [Unknown]
  - Rib fracture [Unknown]
  - Pain [Unknown]
  - Headache [Unknown]
  - Lower limb fracture [Unknown]
  - Peroneal nerve palsy [Unknown]
  - Drug ineffective [Unknown]
  - Concussion [Unknown]
  - Abasia [Unknown]
  - Head injury [Unknown]
  - Hip fracture [Unknown]
